FAERS Safety Report 11199272 (Version 7)
Quarter: 2016Q1

REPORT INFORMATION
  Report Type: Spontaneous
  Country: US (occurrence: US)
  Receive Date: 20150618
  Receipt Date: 20160324
  Transmission Date: 20160525
  Serious: Yes (Other)
  Sender: FDA-Public Use
  Company Number: US-PFIZER INC-2015200081

PATIENT
  Age: 68 Year
  Sex: Male
  Weight: 63.49 kg

DRUGS (3)
  1. SUTENT [Suspect]
     Active Substance: SUNITINIB MALATE
     Indication: RENAL CANCER
     Dosage: 50 MG, DAILY
     Route: 048
     Dates: start: 20150519
  2. SUTENT [Suspect]
     Active Substance: SUNITINIB MALATE
     Dosage: 50 MG, DAILY
     Route: 048
     Dates: start: 20150616
  3. SUTENT [Suspect]
     Active Substance: SUNITINIB MALATE
     Dosage: 50 MG, ON DAYS 1-28 EVERY 42 DAYS
     Route: 048
     Dates: start: 20150521

REACTIONS (8)
  - Vomiting [Unknown]
  - Skin exfoliation [Unknown]
  - Acne [Unknown]
  - Salivary hypersecretion [Unknown]
  - Skin discolouration [Unknown]
  - Weight decreased [Unknown]
  - Diarrhoea [Unknown]
  - Rash macular [Unknown]

NARRATIVE: CASE EVENT DATE: 20150727
